FAERS Safety Report 14363892 (Version 2)
Quarter: 2018Q1

REPORT INFORMATION
  Report Type: Spontaneous
  Country: US (occurrence: US)
  Receive Date: 20180108
  Receipt Date: 20180122
  Transmission Date: 20180509
  Serious: Yes (Other)
  Sender: FDA-Public Use
  Company Number: US-ASTRAZENECA-2012SE78229

PATIENT
  Age: 71 Year
  Sex: Female

DRUGS (9)
  1. DEXILANT [Suspect]
     Active Substance: DEXLANSOPRAZOLE
     Indication: GASTROOESOPHAGEAL REFLUX DISEASE
     Route: 048
     Dates: start: 2015, end: 201712
  2. NEXIUM [Suspect]
     Active Substance: ESOMEPRAZOLE MAGNESIUM
     Route: 048
     Dates: start: 2015
  3. DEXILANT [Suspect]
     Active Substance: DEXLANSOPRAZOLE
     Indication: PEPTIC ULCER
     Route: 048
     Dates: start: 2012, end: 2017
  4. DEXILANT [Suspect]
     Active Substance: DEXLANSOPRAZOLE
     Indication: PEPTIC ULCER
     Route: 048
     Dates: start: 2015, end: 201712
  5. NEXIUM [Suspect]
     Active Substance: ESOMEPRAZOLE MAGNESIUM
     Route: 048
     Dates: start: 2012, end: 2017
  6. DEXILANT [Suspect]
     Active Substance: DEXLANSOPRAZOLE
     Indication: GASTROOESOPHAGEAL REFLUX DISEASE
     Route: 048
     Dates: start: 2012, end: 2017
  7. DEXILANT [Suspect]
     Active Substance: DEXLANSOPRAZOLE
     Indication: GASTRIC DISORDER
     Route: 048
     Dates: start: 2012, end: 2017
  8. CRESTOR [Suspect]
     Active Substance: ROSUVASTATIN CALCIUM
     Route: 048
  9. DEXILANT [Suspect]
     Active Substance: DEXLANSOPRAZOLE
     Indication: GASTRIC DISORDER
     Route: 048
     Dates: start: 2015, end: 201712

REACTIONS (2)
  - Renal injury [Unknown]
  - Chronic kidney disease [Unknown]

NARRATIVE: CASE EVENT DATE: 2015
